FAERS Safety Report 7793954 (Version 4)
Quarter: 2012Q4

REPORT INFORMATION
  Report Type: 
  Country: US (occurrence: US)
  Receive Date: 20110201
  Receipt Date: 20121019
  Transmission Date: 20130627
  Serious: Yes (Hospitalization)
  Sender: FDA-Public Use
  Company Number: US-BAYER-2011-009472

PATIENT
  Age: 33 Year
  Sex: Female
  Weight: 98 kg

DRUGS (17)
  1. YASMIN [Suspect]
     Indication: ACNE
     Dosage: UNK
     Route: 048
     Dates: start: 2004, end: 2005
  2. YASMIN [Suspect]
     Indication: PREMENSTRUAL SYNDROME
  3. BENTYL [Concomitant]
  4. PREVACID [Concomitant]
  5. TRIAMTERENE [Concomitant]
  6. LISINOPRIL [Concomitant]
  7. LORAZEPAM [Concomitant]
  8. MULTI VITAMIN [Concomitant]
  9. PRAVACHOL [Concomitant]
  10. ATIVAN [Concomitant]
  11. LORTAB [Concomitant]
  12. RELPAX [Concomitant]
  13. VOLTAREN [Concomitant]
  14. TOPAMAX [Concomitant]
  15. MOBIC [Concomitant]
  16. ZUFLONEC [Concomitant]
  17. BOTOX [Concomitant]

REACTIONS (6)
  - Myocardial infarction [None]
  - Cholelithiasis [None]
  - Cholecystitis chronic [None]
  - Pain [None]
  - Injury [None]
  - Abdominal pain [None]
